FAERS Safety Report 16096156 (Version 6)
Quarter: 2019Q3

REPORT INFORMATION
  Report Type: Report from Study
  Country: US (occurrence: US)
  Receive Date: 20190320
  Receipt Date: 20190702
  Transmission Date: 20191004
  Serious: Yes (Other)
  Sender: FDA-Public Use
  Company Number: US-PFIZER INC-2019112264

PATIENT
  Age: 47 Year
  Sex: Male

DRUGS (1)
  1. SUTENT [Suspect]
     Active Substance: SUNITINIB MALATE
     Indication: RENAL CELL CARCINOMA
     Dosage: 50 MG, CYCLIC (DAILY FOR 14 DAYS REPEAT EVERY 21 DAYS) (FOR 14 DAYS, THEN 7 DAYS OFF)
     Route: 048
     Dates: start: 20190302, end: 20190309

REACTIONS (11)
  - Haemorrhage [Unknown]
  - Eye haemorrhage [Unknown]
  - Neoplasm progression [Recovering/Resolving]
  - Hypertension [Recovered/Resolved]
  - Vision blurred [Unknown]
  - Fatigue [Recovered/Resolved]
  - Asthenia [Recovered/Resolved]
  - Abdominal distension [Recovered/Resolved]
  - Respiratory tract congestion [Unknown]
  - Cough [Unknown]
  - Diarrhoea [Recovered/Resolved]

NARRATIVE: CASE EVENT DATE: 2019
